FAERS Safety Report 4730254-3 (Version None)
Quarter: 2005Q3

REPORT INFORMATION
  Report Type: 
  Country: None (occurrence: None)
  Receive Date: 20050801
  Receipt Date: 20050420
  Transmission Date: 20060218
  Serious: Yes (Other)
  Sender: FDA-Public Use
  Company Number: PL-ROCHE-402665

PATIENT
  Age: 27 Year
  Sex: Female
  Weight: 62 kg

DRUGS (2)
  1. ROACCUTANE [Suspect]
     Indication: ACNE
     Route: 048
     Dates: start: 20050414, end: 20050428
  2. ROACCUTANE [Suspect]
     Route: 048
     Dates: start: 20050429

REACTIONS (10)
  - DRY SKIN [None]
  - GENITAL INFECTION FEMALE [None]
  - HEADACHE [None]
  - INFLAMMATION [None]
  - INGROWING NAIL [None]
  - LIP DRY [None]
  - PAIN [None]
  - PURULENT DISCHARGE [None]
  - SKIN EXFOLIATION [None]
  - SOMNOLENCE [None]
